FAERS Safety Report 4536554-4 (Version None)
Quarter: 2004Q4

REPORT INFORMATION
  Report Type: 
  Country: None (occurrence: None)
  Receive Date: 20041220
  Receipt Date: 20041210
  Transmission Date: 20050328
  Serious: Yes (Hospitalization, Other)
  Sender: FDA-Public Use
  Company Number: 2004052661

PATIENT
  Age: 56 Year
  Sex: Female
  Weight: 68 kg

DRUGS (8)
  1. LIPITOR [Suspect]
     Indication: HYPERCHOLESTEROLAEMIA
     Dosage: 10 MG (1 IN 1 D), ORAL
     Route: 048
     Dates: start: 20031008, end: 20040414
  2. AMLODIPINE BESYLATE [Concomitant]
  3. TEMOCAPRIL HYDROCHLORIDE (TEMOCAPRIL HYDROCHLORIDE) [Concomitant]
  4. LOSARTAN POTASSIUM [Concomitant]
  5. TICLOPIDINE HCL [Concomitant]
  6. ASPIRIN [Concomitant]
  7. NICERGOLINE (NICERGOLINE) [Concomitant]
  8. SENNA LEAF (SENNA LEAF) [Concomitant]

REACTIONS (1)
  - DIABETES MELLITUS [None]
